FAERS Safety Report 9188476 (Version 1)
Quarter: 2012Q4

REPORT INFORMATION
  Report Type: 
  Country: IT (occurrence: IT)
  Receive Date: 20121205
  Receipt Date: 20121205
  Transmission Date: 20130627
  Serious: Yes (Hospitalization)
  Sender: FDA-Public Use
  Company Number: PHHY2012IT110896

PATIENT
  Sex: Male

DRUGS (1)
  1. TAMSULOSIN [Suspect]
     Indication: PROSTATIC DISORDER
     Dosage: 1 DF, QD
     Route: 048
     Dates: start: 20111020, end: 20120215

REACTIONS (2)
  - Musculoskeletal chest pain [Recovered/Resolved]
  - Tachycardia [Recovered/Resolved]
